FAERS Safety Report 20765454 (Version 1)
Quarter: 2022Q2

REPORT INFORMATION
  Report Type: Spontaneous
  Country: US (occurrence: US)
  Receive Date: 20220428
  Receipt Date: 20220428
  Transmission Date: 20220721
  Serious: No
  Sender: FDA-Public Use
  Company Number: US-SA-SAC20220425001140

PATIENT
  Age: 65 Year
  Sex: Female

DRUGS (1)
  1. DUPIXENT [Suspect]
     Active Substance: DUPILUMAB
     Indication: Dermatitis atopic
     Dosage: 300 MG, QOW
     Route: 058
     Dates: start: 20220322

REACTIONS (7)
  - Scab [Unknown]
  - Vomiting [Unknown]
  - Diarrhoea [Unknown]
  - Influenza like illness [Unknown]
  - Blister [Unknown]
  - Malaise [Unknown]
  - Rash [Unknown]
